FAERS Safety Report 6339207-5 (Version None)
Quarter: 2009Q3

REPORT INFORMATION
  Report Type: 
  Country: None (occurrence: None)
  Receive Date: 20090903
  Receipt Date: 20090824
  Transmission Date: 20100115
  Serious: Yes (Other)
  Sender: FDA-Public Use
  Company Number: US-BAXTER-2009BH013178

PATIENT
  Sex: Male

DRUGS (5)
  1. IGIV, UNSPECIFIED PRODUCT [Suspect]
     Indication: AUTONOMIC NERVOUS SYSTEM IMBALANCE
     Route: 042
     Dates: start: 20090706
  2. IGIV, UNSPECIFIED PRODUCT [Suspect]
     Indication: OFF LABEL USE
     Route: 042
     Dates: start: 20090706
  3. KLONOPIN [Suspect]
     Indication: ANXIETY
     Route: 048
  4. INDERAL [Concomitant]
     Indication: TACHYCARDIA
     Route: 048
  5. PERCOCET [Concomitant]
     Indication: DRUG USE FOR UNKNOWN INDICATION
     Route: 048

REACTIONS (4)
  - ASTHENIA [None]
  - DYSPNOEA [None]
  - PAIN [None]
  - PYREXIA [None]
